FAERS Safety Report 13603995 (Version 1)
Quarter: 2017Q2

REPORT INFORMATION
  Report Type: Spontaneous
  Country: ZA (occurrence: ZA)
  Receive Date: 20170602
  Receipt Date: 20170602
  Transmission Date: 20170830
  Serious: Yes (Other)
  Sender: FDA-Public Use
  Company Number: ZA-009507513-1705ZAF015289

PATIENT
  Age: 45 Year
  Sex: Male

DRUGS (3)
  1. CLOXACILLIN [Suspect]
     Active Substance: CLOXACILLIN
  2. DAPTOMYCIN. [Suspect]
     Active Substance: DAPTOMYCIN
     Indication: STAPHYLOCOCCAL BACTERAEMIA
     Dosage: 500 MG, UNK
     Dates: start: 20170511
  3. DAPTOMYCIN. [Suspect]
     Active Substance: DAPTOMYCIN
     Dosage: 750 MG, UNK

REACTIONS (3)
  - Staphylococcal bacteraemia [Unknown]
  - Drug ineffective [Unknown]
  - Pathogen resistance [Unknown]
